FAERS Safety Report 7879153-9 (Version None)
Quarter: 2011Q4

REPORT INFORMATION
  Report Type: 
  Country: None (occurrence: None)
  Receive Date: 20111101
  Receipt Date: 20111021
  Transmission Date: 20120403
  Serious: Yes (Other)
  Sender: FDA-Public Use
  Company Number: US-BAYER-201030093NA

PATIENT
  Age: 44 Year
  Sex: Female
  Weight: 63.492 kg

DRUGS (6)
  1. WOMEN+#8217;S ONE A DAY VITAMIN [Concomitant]
     Dosage: UNK UNK, QD
  2. DROSPIRENONE AND ETHINYL ESTRADIOL [Suspect]
     Indication: MENSTRUAL CYCLE MANAGEMENT
  3. DROSPIRENONE AND ETHINYL ESTRADIOL [Suspect]
     Indication: MIGRAINE
  4. TYLENOL COLD [Concomitant]
     Dosage: UNK
     Dates: start: 20090301
  5. DROSPIRENONE AND ETHINYL ESTRADIOL [Suspect]
     Indication: PREMENSTRUAL SYNDROME
     Dosage: UNK
     Route: 048
     Dates: start: 20090201, end: 20090313
  6. DROSPIRENONE AND ETHINYL ESTRADIOL [Suspect]
     Indication: HORMONE LEVEL ABNORMAL

REACTIONS (7)
  - CHEST PAIN [None]
  - PULMONARY EMBOLISM [None]
  - PANIC ATTACK [None]
  - ANXIETY [None]
  - HEADACHE [None]
  - FATIGUE [None]
  - DYSPNOEA [None]
